FAERS Safety Report 22321089 (Version 1)
Quarter: 2023Q2

REPORT INFORMATION
  Report Type: Spontaneous
  Country: US (occurrence: US)
  Receive Date: 20230515
  Receipt Date: 20230515
  Transmission Date: 20230722
  Serious: Yes (Hospitalization, Other)
  Sender: FDA-Public Use
  Company Number: US-TEVA-2023-US-2886705

PATIENT
  Age: 68 Year
  Sex: Male

DRUGS (3)
  1. BENDAMUSTINE [Suspect]
     Active Substance: BENDAMUSTINE
     Indication: Waldenstrom^s macroglobulinaemia
     Dosage: 90 MG/M2 , ON DAYS 1 AND 2 OF 4 WEEKS CYCLE
     Route: 065
  2. ALLOPURINOL [Suspect]
     Active Substance: ALLOPURINOL
     Indication: Tumour lysis syndrome
     Route: 065
  3. RITUXIMAB [Suspect]
     Active Substance: RITUXIMAB
     Indication: Waldenstrom^s macroglobulinaemia
     Dosage: 375 MG/M2 , ON DAYS 1 OF 4 WEEKS CYCLE
     Route: 065

REACTIONS (6)
  - Tumour lysis syndrome [Unknown]
  - Drug reaction with eosinophilia and systemic symptoms [Unknown]
  - Acute kidney injury [Unknown]
  - Sepsis [Unknown]
  - Atrial fibrillation [Unknown]
  - Cryoglobulinaemia [Recovered/Resolved]
